FAERS Safety Report 10136218 (Version 4)
Quarter: 2014Q2

REPORT INFORMATION
  Report Type: Spontaneous
  Country: JP (occurrence: JP)
  Receive Date: 20140429
  Receipt Date: 20140604
  Transmission Date: 20141212
  Serious: Yes (Hospitalization, Other)
  Sender: FDA-Public Use
  Company Number: JP-AMGEN-JPNSP2014022885

PATIENT
  Age: 66 Year
  Sex: Male
  Weight: 65 kg

DRUGS (11)
  1. ENBREL [Suspect]
     Indication: RHEUMATOID ARTHRITIS
     Dosage: 25 MG, 2X/WEEK
     Route: 058
     Dates: start: 20071030, end: 20111216
  2. ENBREL [Suspect]
     Dosage: 50 MG, WEEKLY
     Route: 058
     Dates: start: 20111216, end: 20130708
  3. ENBREL [Suspect]
     Dosage: 50 MG, WEEKLY
     Route: 058
     Dates: start: 20130719, end: 20140320
  4. RHEUMATREX                         /00113801/ [Suspect]
     Indication: RHEUMATOID ARTHRITIS
     Dosage: 4 MG, WEEKLY
     Route: 048
  5. PREDNISOLONE [Concomitant]
     Indication: RHEUMATOID ARTHRITIS
     Dosage: 2 MG, 1X/DAY
     Route: 048
     Dates: start: 20060320, end: 20071030
  6. PREDNISOLONE [Concomitant]
     Dosage: 5 MG, 1X/DAY
     Route: 048
     Dates: start: 20101001, end: 20101111
  7. PREDNISOLONE [Concomitant]
     Dosage: 3 MG, 1X/DAY
     Route: 048
     Dates: start: 20101111, end: 20130308
  8. PROGRAF [Concomitant]
     Indication: RHEUMATOID ARTHRITIS
     Dosage: 1 MG, 1X/DAY
     Route: 048
     Dates: start: 20080725, end: 20090810
  9. CELECOX [Concomitant]
     Indication: RHEUMATOID ARTHRITIS
     Dosage: 2 DF, 1X/DAY
     Route: 048
     Dates: start: 20070806, end: 20090226
  10. PIRESPA [Concomitant]
     Indication: RHEUMATOID ARTHRITIS
     Dosage: 200 MG, 3X/DAY
     Route: 048
     Dates: start: 20091110
  11. BARACLUDE [Concomitant]
     Indication: HEPATITIS B
     Dosage: 0.5 MG, 1X/DAY
     Route: 048
     Dates: start: 20121219

REACTIONS (4)
  - Pain [Unknown]
  - Pulmonary tuberculosis [Unknown]
  - Respiratory tract infection viral [Recovered/Resolved]
  - Interstitial lung disease [Unknown]
